FAERS Safety Report 9610316 (Version 2)
Quarter: 2013Q4

REPORT INFORMATION
  Report Type: Spontaneous
  Country: US (occurrence: US)
  Receive Date: 20131009
  Receipt Date: 20131009
  Transmission Date: 20140711
  Serious: No
  Sender: FDA-Public Use
  Company Number: US-PURDUE-USA-2012-0097064

PATIENT
  Sex: Female

DRUGS (4)
  1. BUTRANS [Suspect]
     Indication: BACK PAIN
     Dosage: 20 MCG, UNK
     Route: 062
  2. NEURONTIN [Concomitant]
     Indication: NEURALGIA
     Dosage: 600 MG, QID
     Route: 048
  3. TRAMADOL (SIMILAR TO NDA 21-745) [Concomitant]
     Indication: BACK PAIN
     Dosage: 300 MG, DAILY
     Route: 048
  4. LIPITOR [Concomitant]
     Indication: BLOOD CHOLESTEROL INCREASED
     Dosage: 20 MG, DAILY
     Route: 048

REACTIONS (3)
  - Application site burn [Not Recovered/Not Resolved]
  - Product adhesion issue [Not Recovered/Not Resolved]
  - Application site rash [Not Recovered/Not Resolved]
